FAERS Safety Report 5625877-3 (Version None)
Quarter: 2008Q1

REPORT INFORMATION
  Report Type: 
  Country: None (occurrence: None)
  Receive Date: 20080214
  Receipt Date: 20080131
  Transmission Date: 20080703
  Serious: Yes (Hospitalization)
  Sender: FDA-Public Use
  Company Number: FR-AMGEN-US257127

PATIENT
  Sex: Female

DRUGS (11)
  1. ENBREL [Suspect]
     Indication: RHEUMATOID ARTHRITIS
     Dosage: LYOPHILIZED (25 MG 2 TIMES WEEKLY)
     Route: 058
     Dates: start: 20040301, end: 20071001
  2. CORTANCYL [Suspect]
     Indication: RHEUMATOID ARTHRITIS
     Route: 048
     Dates: start: 20040101, end: 20071128
  3. CORTANCYL [Suspect]
     Dosage: 20 MG TOTAL DAILY
     Route: 048
     Dates: start: 20071129
  4. MABTHERA [Suspect]
     Indication: RHEUMATOID ARTHRITIS
     Dosage: 1 G
     Route: 042
     Dates: start: 20071112, end: 20071112
  5. NOVATREX [Suspect]
     Route: 048
     Dates: start: 20030101
  6. NOVATREX [Suspect]
     Dates: start: 20060101, end: 20070901
  7. NOVATREX [Suspect]
     Route: 048
     Dates: start: 20040101
  8. NOVATREX [Suspect]
     Dates: start: 20030101, end: 20040301
  9. ARTOTEC [Concomitant]
  10. ARTOTEC [Concomitant]
     Dosage: PROGRESSIVELY INCREASED AT 75 MG 3 TIMES DAILY
     Route: 048
     Dates: start: 20071101, end: 20071128
  11. ARTOTEC [Concomitant]
     Dosage: NO MORE THAN 150 MG TOTAL DAILY; IF NEEDED
     Route: 048
     Dates: start: 20071129

REACTIONS (9)
  - ASPERGILLOMA [None]
  - CONDITION AGGRAVATED [None]
  - DRUG EFFECT DECREASED [None]
  - GENERAL PHYSICAL HEALTH DETERIORATION [None]
  - INFECTION [None]
  - INFLAMMATION [None]
  - JOINT DESTRUCTION [None]
  - RHEUMATOID ARTHRITIS [None]
  - SINUSITIS ASPERGILLUS [None]
